FAERS Safety Report 4439119-8 (Version None)
Quarter: 2004Q3

REPORT INFORMATION
  Report Type: 
  Country: None (occurrence: None)
  Receive Date: 20040831
  Receipt Date: 20040817
  Transmission Date: 20050211
  Serious: Yes (Hospitalization)
  Sender: FDA-Public Use
  Company Number: 2004-FF-00492FF

PATIENT
  Age: 39 Year
  Sex: Female

DRUGS (3)
  1. VIRAMUNE [Suspect]
     Indication: HIV INFECTION
     Dosage: 200 MG (200 MG) PO
     Route: 048
     Dates: start: 20040703, end: 20040713
  2. COMBIVIR [Concomitant]
  3. FLUCONAZOLE [Concomitant]

REACTIONS (21)
  - ABDOMINAL PAIN [None]
  - ASTHENIA [None]
  - BACTERIAL INFECTION [None]
  - CARDIOMEGALY [None]
  - CHILLS [None]
  - CULTURE URINE POSITIVE [None]
  - CYTOMEGALOVIRUS INFECTION [None]
  - DYSPNOEA [None]
  - EPSTEIN-BARR VIRUS INFECTION [None]
  - EYELID OEDEMA [None]
  - FACE OEDEMA [None]
  - HEADACHE [None]
  - HEPATITIS B [None]
  - HEPATITIS C [None]
  - ISCHAEMIC STROKE [None]
  - MOTOR DYSFUNCTION [None]
  - PRURITUS [None]
  - PYREXIA [None]
  - RASH ERYTHEMATOUS [None]
  - SYPHILIS [None]
  - TOXOPLASMOSIS [None]
